FAERS Safety Report 20290185 (Version 1)
Quarter: 2022Q1

REPORT INFORMATION
  Report Type: Spontaneous
  Country: US (occurrence: US)
  Receive Date: 20220104
  Receipt Date: 20220104
  Transmission Date: 20220424
  Serious: No
  Sender: FDA-Public Use
  Company Number: US-ORGANON-O2112COL001320

PATIENT
  Age: 60 Year
  Sex: Male

DRUGS (6)
  1. ZOCOR [Suspect]
     Active Substance: SIMVASTATIN
     Dosage: UNK
     Route: 048
  2. ZOCOR [Suspect]
     Active Substance: SIMVASTATIN
     Dosage: EVERY-OTHER-DAY
  3. ATORVASTATIN [Suspect]
     Active Substance: ATORVASTATIN
     Dosage: UNK
  4. ATORVASTATIN [Suspect]
     Active Substance: ATORVASTATIN
     Dosage: EVERY-OTHER-DAY
  5. ROSUVASTATIN [Suspect]
     Active Substance: ROSUVASTATIN
     Dosage: UNK
  6. ROSUVASTATIN [Suspect]
     Active Substance: ROSUVASTATIN
     Dosage: EVERY-OTHER-DAY

REACTIONS (1)
  - Muscle disorder [Not Recovered/Not Resolved]
